FAERS Safety Report 6578707-X (Version None)
Quarter: 2010Q1

REPORT INFORMATION
  Report Type: 
  Country: None (occurrence: None)
  Receive Date: 20100202
  Receipt Date: 20100127
  Transmission Date: 20100710
  Serious: Yes (Other)
  Sender: FDA-Public Use
  Company Number: 2010SP006153

PATIENT
  Age: 61 Year
  Sex: Male
  Weight: 65 kg

DRUGS (5)
  1. ROCURONIUM BROMIDE [Suspect]
     Indication: INDUCTION OF ANAESTHESIA
     Dosage: IV
     Route: 042
  2. HYDROCORTISONE [Suspect]
     Indication: ANAESTHESIA PROCEDURE
     Dosage: 1.5 PCT, INH
     Route: 045
  3. HYDROCORTISONE [Suspect]
     Indication: MAINTENANCE OF ANAESTHESIA
     Dosage: 1.5 PCT, INH
     Route: 045
  4. PROPOFOL [Suspect]
     Indication: INDUCTION OF ANAESTHESIA
  5. FENTANYL-100 [Suspect]
     Indication: INDUCTION OF ANAESTHESIA

REACTIONS (4)
  - BLOOD PRESSURE DECREASED [None]
  - ELECTROCARDIOGRAM ST SEGMENT ELEVATION [None]
  - SUPRAVENTRICULAR EXTRASYSTOLES [None]
  - VENTRICULAR TACHYCARDIA [None]
